FAERS Safety Report 21349305 (Version 1)
Quarter: 2022Q3

REPORT INFORMATION
  Report Type: Spontaneous
  Country: FR (occurrence: FR)
  Receive Date: 20220919
  Receipt Date: 20220919
  Transmission Date: 20221027
  Serious: Yes (Other)
  Sender: FDA-Public Use
  Company Number: FR-MYLANLABS-2022M1094470

PATIENT
  Age: 61 Year
  Sex: Male

DRUGS (6)
  1. MYCOPHENOLATE MOFETIL [Interacting]
     Active Substance: MYCOPHENOLATE MOFETIL
     Indication: Immunosuppressant drug therapy
     Dosage: 500 MILLIGRAM, QD
     Route: 065
  2. TACROLIMUS [Interacting]
     Active Substance: TACROLIMUS
     Indication: Immunosuppressant drug therapy
     Dosage: 0.5 MILLIGRAM, BID
     Route: 065
  3. COMIRNATY [Interacting]
     Active Substance: TOZINAMERAN
     Indication: COVID-19 immunisation
     Dosage: UNK (ADMINISTERED FIRST DOSE)
     Route: 065
     Dates: start: 20210121
  4. COMIRNATY [Interacting]
     Active Substance: TOZINAMERAN
     Dosage: UNK (ADMINISTERED SECOND DOSE)
     Route: 065
     Dates: start: 20210218
  5. COMIRNATY [Interacting]
     Active Substance: TOZINAMERAN
     Dosage: UNK (ADMINISTERED THIRD DOSE)
     Route: 065
     Dates: start: 20210525
  6. AGALSIDASE BETA [Concomitant]
     Active Substance: AGALSIDASE BETA
     Indication: Fabry^s disease
     Dosage: 1 MILLIGRAM/KILOGRAM (ADMINISTERED ON EVERY OTHER WEEK)
     Route: 065
     Dates: start: 2012

REACTIONS (2)
  - Drug interaction [Unknown]
  - Seroconversion test negative [Unknown]

NARRATIVE: CASE EVENT DATE: 20210101
